FAERS Safety Report 11174716 (Version 1)
Quarter: 2015Q2

REPORT INFORMATION
  Report Type: Spontaneous
  Country: US (occurrence: None)
  Receive Date: 20150608
  Receipt Date: 20150608
  Transmission Date: 20150821
  Serious: No
  Sender: FDA-Public Use
  Company Number: None

PATIENT
  Age: 50 Year
  Sex: Female
  Weight: 99.79 kg

DRUGS (8)
  1. CINNAMON. [Concomitant]
     Active Substance: CINNAMON
  2. VITAMIN D [Concomitant]
     Active Substance: CHOLECALCIFEROL
  3. METFORMIN [Concomitant]
     Active Substance: METFORMIN HYDROCHLORIDE
  4. HYDROCHLORATHIAZIDE [Concomitant]
     Active Substance: HYDROCHLOROTHIAZIDE
  5. SYNTHROID [Concomitant]
     Active Substance: LEVOTHYROXINE SODIUM
  6. CONTRAVE [Suspect]
     Active Substance: BUPROPION HYDROCHLORIDE\NALTREXONE HYDROCHLORIDE
     Indication: WEIGHT DECREASED
     Dosage: STAGGERED 1-4 PILLS STAGGERS TAKEN BY MOUTH
     Route: 048
  7. OMEPRAZOLE. [Concomitant]
     Active Substance: OMEPRAZOLE
  8. VITAMIN B [Concomitant]
     Active Substance: VITAMIN B

REACTIONS (2)
  - Nausea [None]
  - Therapy change [None]

NARRATIVE: CASE EVENT DATE: 20150603
